FAERS Safety Report 8814625 (Version 2)
Quarter: 2012Q4

REPORT INFORMATION
  Report Type: 
  Country: US (occurrence: US)
  Receive Date: 20120928
  Receipt Date: 20121016
  Transmission Date: 20130627
  Serious: Yes (Hospitalization)
  Sender: FDA-Public Use
  Company Number: US-ACTELION-A-NJ2012-71797

PATIENT
  Age: 47 Year
  Sex: Female

DRUGS (3)
  1. TRACLEER [Suspect]
     Indication: PULMONARY ARTERIAL HYPERTENSION
     Dosage: 125 mg, bid
     Route: 048
     Dates: start: 20120818
  2. TRACLEER [Suspect]
     Dosage: 62.5 mg, bid
     Route: 048
  3. SILDENAFIL [Concomitant]

REACTIONS (21)
  - Diabetic autonomic neuropathy [Unknown]
  - Neuropathy peripheral [Unknown]
  - Flushing [Unknown]
  - Burning sensation [Unknown]
  - Dysuria [Unknown]
  - Osteoarthritis [Unknown]
  - Condition aggravated [Unknown]
  - Fluid imbalance [Unknown]
  - Gastritis [Not Recovered/Not Resolved]
  - Vomiting [Not Recovered/Not Resolved]
  - Pyrexia [Not Recovered/Not Resolved]
  - Nausea [Not Recovered/Not Resolved]
  - Abdominal pain [Not Recovered/Not Resolved]
  - Fatigue [Not Recovered/Not Resolved]
  - Renal failure [Unknown]
  - Weight decreased [Unknown]
  - Cough [Unknown]
  - Chest discomfort [Unknown]
  - Hypotension [Unknown]
  - Dizziness [Unknown]
  - Anaemia [Unknown]
